FAERS Safety Report 11098891 (Version 1)
Quarter: 2015Q2

REPORT INFORMATION
  Report Type: Spontaneous
  Country: SE (occurrence: SE)
  Receive Date: 20150508
  Receipt Date: 20150508
  Transmission Date: 20150821
  Serious: Yes (Hospitalization)
  Sender: FDA-Public Use
  Company Number: SE-PFIZER INC-2015150340

PATIENT
  Age: 71 Year
  Sex: Male

DRUGS (2)
  1. DALACIN [Suspect]
     Active Substance: CLINDAMYCIN\CLINDAMYCIN PHOSPHATE
     Dosage: UNK
  2. EKVACILLIN [Suspect]
     Active Substance: CLOXACILLIN SODIUM
     Dosage: UNK

REACTIONS (1)
  - Skin reaction [Unknown]

NARRATIVE: CASE EVENT DATE: 20140206
